FAERS Safety Report 20617048 (Version 2)
Quarter: 2022Q1

REPORT INFORMATION
  Report Type: Report from Study
  Country: ES (occurrence: None)
  Receive Date: 20220321
  Receipt Date: 20220331
  Transmission Date: 20220424
  Serious: Yes (Hospitalization)
  Sender: FDA-Public Use
  Company Number: ES-ROCHE-3037378

PATIENT
  Age: 76 Year
  Sex: Female
  Weight: 44.8 kg

DRUGS (43)
  1. TIRAGOLUMAB [Suspect]
     Active Substance: TIRAGOLUMAB
     Indication: Metastatic neoplasm
     Dosage: DOSE LAST STUDY DRUG ADMIN PRIOR AE IS 840 MG?START DATE OF MOST RECENT DOSE OF STUDY DRUG PRIOR TO
     Route: 042
     Dates: start: 20210614
  2. ATEZOLIZUMAB [Suspect]
     Active Substance: ATEZOLIZUMAB
     Indication: Metastatic neoplasm
     Dosage: DOSE LAST STUDY DRUG ADMIN PRIOR AE IS 1680 MG?START DATE OF MOST RECENT DOSE OF STUDY DRUG PRIOR TO
     Route: 042
     Dates: start: 20210614
  3. BUDESONIDE [Concomitant]
     Active Substance: BUDESONIDE
     Indication: Respiratory failure
     Dosage: ONGOING YES
     Dates: start: 20200501
  4. FORMOTEROL FUMARATE [Concomitant]
     Active Substance: FORMOTEROL FUMARATE
     Indication: Respiratory failure
     Dosage: ONGOING YES
     Dates: start: 20200501
  5. MEGESTROL ACETATE [Concomitant]
     Active Substance: MEGESTROL ACETATE
     Indication: Decreased appetite
     Dosage: ONGOING YES
     Route: 048
     Dates: start: 20200501
  6. LANSOPRAZOLE [Concomitant]
     Active Substance: LANSOPRAZOLE
     Dosage: ONGOING YES
     Route: 048
     Dates: start: 20201201
  7. TRAMADOL [Concomitant]
     Active Substance: TRAMADOL
     Indication: Pain
     Dosage: ONGOING YES
     Route: 048
     Dates: start: 20210101
  8. ACETAMINOPHEN [Concomitant]
     Active Substance: ACETAMINOPHEN
     Indication: Pain
     Route: 048
     Dates: start: 20210101
  9. ACETAMINOPHEN [Concomitant]
     Active Substance: ACETAMINOPHEN
     Indication: Tumour pain
     Dosage: ONGOING NO
     Route: 042
     Dates: start: 20220204, end: 20220217
  10. ACETAMINOPHEN [Concomitant]
     Active Substance: ACETAMINOPHEN
     Dosage: ONGOING NO
     Route: 042
     Dates: start: 20220204, end: 20220217
  11. MEROPENEM [Concomitant]
     Active Substance: MEROPENEM
     Indication: Pneumonia
     Dosage: ONGOING NO
     Route: 042
     Dates: start: 20220204, end: 20220208
  12. MEROPENEM [Concomitant]
     Active Substance: MEROPENEM
     Dosage: ONGOING NO
     Route: 042
     Dates: start: 20220204, end: 20220208
  13. SODIUM CHLORIDE [Concomitant]
     Active Substance: SODIUM CHLORIDE
     Dosage: ONGOING NO?GIVEN FOR PROPHYLAXIS YES
     Route: 042
     Dates: start: 20220204, end: 20220209
  14. SODIUM CHLORIDE [Concomitant]
     Active Substance: SODIUM CHLORIDE
     Dosage: ONGOING NO?GIVEN FOR PROPHYLAXIS YES
     Route: 042
     Dates: start: 20220217, end: 20220217
  15. SODIUM CHLORIDE [Concomitant]
     Active Substance: SODIUM CHLORIDE
     Dosage: ONGOING NO?GIVEN FOR PROPHYLAXIS YES
     Route: 042
     Dates: start: 20220204, end: 20220209
  16. SODIUM CHLORIDE [Concomitant]
     Active Substance: SODIUM CHLORIDE
     Dosage: ONGOING NO?GIVEN FOR PROPHYLAXIS YES
     Route: 042
     Dates: start: 20220217, end: 20220217
  17. METRONIDAZOLE [Concomitant]
     Active Substance: METRONIDAZOLE
     Indication: Pneumonia
     Dosage: ONGOING NO
     Route: 042
     Dates: start: 20220204, end: 20220208
  18. METRONIDAZOLE [Concomitant]
     Active Substance: METRONIDAZOLE
     Dosage: ONGOING NO
     Route: 042
     Dates: start: 20220204, end: 20220208
  19. LINEZOLID [Concomitant]
     Active Substance: LINEZOLID
     Indication: Pneumonia
     Dosage: ONGOING NO
     Route: 042
     Dates: start: 20220204, end: 20220207
  20. DEXTROSE [Concomitant]
     Active Substance: DEXTROSE
     Dosage: ONGOING NO?GIVEN FOR PROPHYLAXIS YES
     Route: 042
     Dates: start: 20220205, end: 20220207
  21. DEXTROSE [Concomitant]
     Active Substance: DEXTROSE
     Dosage: ONGOING NO?GIVEN FOR PROPHYLAXIS YES
     Route: 042
     Dates: start: 20220205, end: 20220207
  22. OMEPRAZOLE [Concomitant]
     Active Substance: OMEPRAZOLE
     Dosage: ONGOING NO
     Route: 042
     Dates: start: 20220205, end: 20220207
  23. OMEPRAZOLE [Concomitant]
     Active Substance: OMEPRAZOLE
     Dosage: ONGOING NO?GIVEN FOR PROPHYLAXIS YES
     Route: 042
     Dates: start: 20220205, end: 20220207
  24. BEMIPARIN [Concomitant]
     Active Substance: BEMIPARIN
     Dosage: ONGOING NO?GIVEN FOR PROPHYLAXIS YES
     Route: 058
     Dates: start: 20220206, end: 20220219
  25. BEMIPARIN [Concomitant]
     Active Substance: BEMIPARIN
     Dosage: ONGOING NO?GIVEN FOR PROPHYLAXIS YES
     Route: 058
     Dates: start: 20220206, end: 20220219
  26. VANCOMYCIN [Concomitant]
     Active Substance: VANCOMYCIN
     Indication: Pneumonia
     Dosage: ONGOING NO
     Route: 042
     Dates: start: 20220208, end: 20220208
  27. VANCOMYCIN [Concomitant]
     Active Substance: VANCOMYCIN
     Dosage: ONGOING NO
     Route: 042
     Dates: start: 20220208, end: 20220208
  28. CEFOTAXIME [Concomitant]
     Active Substance: CEFOTAXIME SODIUM
     Dosage: ONGOING NO
     Route: 042
     Dates: start: 20220208, end: 20220215
  29. CEFOTAXIME [Concomitant]
     Active Substance: CEFOTAXIME SODIUM
     Dosage: ONGOING NO
     Route: 042
     Dates: start: 20220208, end: 20220215
  30. ESOMEPRAZOLE [Concomitant]
     Active Substance: ESOMEPRAZOLE
     Dosage: ONGOING NO?GIVEN FOR PROPHYLAXIS YES
     Route: 048
     Dates: start: 20220208, end: 20220220
  31. ALBUTEROL [Concomitant]
     Active Substance: ALBUTEROL
     Dosage: 1 UNKNOWN?ONGOING NO?GIVEN FOR PROPHYLAXIS YES
     Dates: start: 20220208, end: 20220215
  32. ALBUTEROL [Concomitant]
     Active Substance: ALBUTEROL
     Dosage: 1 UNKNOWN?ONGOING NO?GIVEN FOR PROPHYLAXIS YES
     Dates: start: 20220208, end: 20220215
  33. IPRATROPIUM BROMIDE [Concomitant]
     Active Substance: IPRATROPIUM BROMIDE
     Dosage: ONGOING NO?GIVEN FOR PROPHYLAXIS YES
     Dates: start: 20220208, end: 20220214
  34. IPRATROPIUM BROMIDE [Concomitant]
     Active Substance: IPRATROPIUM BROMIDE
     Dosage: ONGOING NO?GIVEN FOR PROPHYLAXIS YES
     Dates: start: 20220208, end: 20220214
  35. FUROSEMIDE [Concomitant]
     Active Substance: FUROSEMIDE
     Indication: Prophylaxis
     Dosage: ONGOING NO?GIVEN FOR PROPHYLAXIS YES
     Route: 042
     Dates: start: 20220209, end: 20220209
  36. FUROSEMIDE [Concomitant]
     Active Substance: FUROSEMIDE
     Dosage: ONGOING NO?GIVEN FOR PROPHYLAXIS YES
     Route: 048
     Dates: start: 20220218, end: 20220220
  37. FUROSEMIDE [Concomitant]
     Active Substance: FUROSEMIDE
     Dosage: ONGOING NO?GIVEN FOR PROPHYLAXIS YES
     Route: 042
     Dates: start: 20220209, end: 20220209
  38. FUROSEMIDE [Concomitant]
     Active Substance: FUROSEMIDE
     Dosage: ONGOING NO?GIVEN FOR PROPHYLAXIS YES
     Route: 048
     Dates: start: 20220218, end: 20220220
  39. AMOXICILLIN [Concomitant]
     Active Substance: AMOXICILLIN
     Indication: Pneumonia
     Dosage: ONGOING NO
     Route: 048
     Dates: start: 20220215, end: 20220217
  40. AMOXICILLIN [Concomitant]
     Active Substance: AMOXICILLIN
     Dosage: ONGOING NO
     Route: 048
     Dates: start: 20220215, end: 20220217
  41. LINEZOLID [Concomitant]
     Active Substance: LINEZOLID
     Indication: Pneumonia
     Dosage: ONGOING NO
     Route: 042
     Dates: start: 20220204, end: 20220207
  42. ESOMEPRAZOLE [Concomitant]
     Active Substance: ESOMEPRAZOLE
     Dosage: ONGOING NO?GIVEN FOR PROPHYLAXIS YES
     Route: 048
     Dates: start: 20220208, end: 20220220
  43. AMOXICILLIN [Concomitant]
     Active Substance: AMOXICILLIN
     Indication: Pneumonia
     Dosage: ONGOING NO
     Route: 048
     Dates: start: 20220215, end: 20220217

REACTIONS (2)
  - Diarrhoea [Recovered/Resolved]
  - Bronchitis [Recovering/Resolving]

NARRATIVE: CASE EVENT DATE: 20220224
